FAERS Safety Report 24149853 (Version 1)
Quarter: 2024Q3

REPORT INFORMATION
  Report Type: Spontaneous
  Country: FR (occurrence: FR)
  Receive Date: 20240730
  Receipt Date: 20240730
  Transmission Date: 20241017
  Serious: Yes (Hospitalization)
  Sender: AUROBINDO
  Company Number: FR-AFSSAPS-TO2024001338

PATIENT
  Age: 82 Year
  Sex: Female
  Weight: 49 kg

DRUGS (1)
  1. SERTRALINE HYDROCHLORIDE [Suspect]
     Active Substance: SERTRALINE HYDROCHLORIDE
     Indication: Mixed anxiety and depressive disorder
     Dosage: 1 DOSAGE FORM, EVERY MORNING
     Route: 048
     Dates: start: 20240710

REACTIONS (3)
  - Condition aggravated [Recovering/Resolving]
  - Delusion [Recovering/Resolving]
  - Manic symptom [Recovering/Resolving]

NARRATIVE: CASE EVENT DATE: 20240705
